FAERS Safety Report 6574533-6 (Version None)
Quarter: 2010Q1

REPORT INFORMATION
  Report Type: 
  Country: None (occurrence: None)
  Receive Date: 20100209
  Receipt Date: 20090716
  Transmission Date: 20100710
  Serious: No
  Sender: FDA-Public Use
  Company Number: A0561374A

PATIENT
  Age: 51 Year
  Sex: Female

DRUGS (8)
  1. WELLBUTRIN [Suspect]
     Indication: DEPRESSION
     Route: 065
  2. PAXIL CR [Suspect]
     Indication: DEPRESSION
     Dosage: 12.5MG PER DAY
     Route: 048
  3. WELLBUTRIN XL [Suspect]
     Indication: DEPRESSION
     Dosage: 150MG PER DAY
     Route: 048
     Dates: start: 20050501
  4. ACTIVELLA [Concomitant]
  5. OXYCONTIN [Concomitant]
  6. ZYRTEC [Concomitant]
  7. ATIVAN [Concomitant]
  8. CHANTIX [Concomitant]

REACTIONS (11)
  - DEPRESSION [None]
  - DIZZINESS [None]
  - EMOTIONAL DISTRESS [None]
  - FATIGUE [None]
  - HOT FLUSH [None]
  - HYPERHIDROSIS [None]
  - MIDDLE INSOMNIA [None]
  - NIGHTMARE [None]
  - PANIC ATTACK [None]
  - TREMOR [None]
  - WITHDRAWAL SYNDROME [None]
